FAERS Safety Report 9821607 (Version 2)
Quarter: 2014Q2

REPORT INFORMATION
  Report Type: Spontaneous
  Country: US (occurrence: US)
  Receive Date: 20140116
  Receipt Date: 20140501
  Transmission Date: 20141212
  Serious: No
  Sender: FDA-Public Use
  Company Number: US-BIOGENIDEC-2013BI120663

PATIENT
  Age: 48 Year
  Sex: Female
  Weight: 88 kg

DRUGS (7)
  1. TECFIDERA [Suspect]
     Indication: PRODUCT USED FOR UNKNOWN INDICATION
     Route: 048
  2. AMBIEN [Concomitant]
  3. XANAX [Concomitant]
  4. DILAUDID [Concomitant]
  5. TRAZODONE [Concomitant]
  6. PROZAC [Concomitant]
  7. VITAMIN D [Concomitant]

REACTIONS (4)
  - Adverse event [Unknown]
  - Hypersensitivity [Unknown]
  - Flushing [Unknown]
  - Rash generalised [Unknown]
